FAERS Safety Report 6297604-0 (Version None)
Quarter: 2009Q3

REPORT INFORMATION
  Report Type: 
  Country: None (occurrence: None)
  Receive Date: 20090805
  Receipt Date: 20090729
  Transmission Date: 20100115
  Serious: Yes (Hospitalization)
  Sender: FDA-Public Use
  Company Number: PHHY2009JP32426

PATIENT
  Age: 72 Year
  Sex: Female

DRUGS (2)
  1. VOLTAREN [Suspect]
     Indication: RHEUMATOID ARTHRITIS
     Dosage: 55 MG DAILY
     Route: 048
  2. PREDONINE [Concomitant]
     Dosage: 10 MG, UNK
     Route: 048

REACTIONS (1)
  - DIEULAFOY'S VASCULAR MALFORMATION [None]
